FAERS Safety Report 6970545-9 (Version None)
Quarter: 2010Q3

REPORT INFORMATION
  Report Type: 
  Country: None (occurrence: None)
  Receive Date: 20100908
  Receipt Date: 20100831
  Transmission Date: 20110219
  Serious: Yes (Life-Threatening, Hospitalization, Other)
  Sender: FDA-Public Use
  Company Number: AU-ROCHE-720498

PATIENT
  Sex: Female

DRUGS (5)
  1. AVASTIN [Suspect]
     Dosage: FREQUENCY: Q 3/52
     Route: 042
     Dates: start: 20090730
  2. XELODA [Concomitant]
     Dosage: DAY 1-14; FREQUENCY: Q 3/52
     Route: 048
     Dates: start: 20090730, end: 20100715
  3. IRINOTECAN HCL [Concomitant]
     Dates: start: 20090730
  4. OXALIPLATIN [Concomitant]
  5. ATENOLOL [Concomitant]
     Indication: HYPERTENSION

REACTIONS (4)
  - ABDOMINAL PAIN [None]
  - ARTERIAL THROMBOSIS [None]
  - PAIN [None]
  - PULSE ABSENT [None]
